FAERS Safety Report 7499299-7 (Version None)
Quarter: 2011Q2

REPORT INFORMATION
  Report Type: 
  Country: None (occurrence: None)
  Receive Date: 20110524
  Receipt Date: 20110214
  Transmission Date: 20111010
  Serious: No
  Sender: FDA-Public Use
  Company Number: A0913436A

PATIENT

DRUGS (1)
  1. ARZERRA [Suspect]

REACTIONS (1)
  - LIP SWELLING [None]
